FAERS Safety Report 6091730-7 (Version None)
Quarter: 2009Q1

REPORT INFORMATION
  Report Type: 
  Country: None (occurrence: None)
  Receive Date: 20090225
  Receipt Date: 20080430
  Transmission Date: 20090719
  Serious: No
  Sender: FDA-Public Use
  Company Number: A0725608A

PATIENT
  Sex: Male

DRUGS (2)
  1. VALTREX [Suspect]
     Indication: GENITAL HERPES
     Dosage: 500MG PER DAY
     Route: 048
     Dates: start: 20080101
  2. SINGULAIR [Concomitant]

REACTIONS (1)
  - ERECTILE DYSFUNCTION [None]
